FAERS Safety Report 24911569 (Version 4)
Quarter: 2025Q1

REPORT INFORMATION
  Report Type: Spontaneous
  Country: US (occurrence: US)
  Receive Date: 20250131
  Receipt Date: 20250219
  Transmission Date: 20250409
  Serious: No
  Sender: PFIZER
  Company Number: US-PFIZER INC-PV202500011433

PATIENT
  Age: 9 Year
  Sex: Female
  Weight: 65.77 kg

DRUGS (1)
  1. DEPO-PROVERA [Suspect]
     Active Substance: MEDROXYPROGESTERONE ACETATE
     Indication: Menstrual cycle management
     Dosage: 150 MG/ML, EVERY 3 MONTHS (INJECTION)
     Route: 050
     Dates: start: 1996

REACTIONS (2)
  - Peripheral swelling [Not Recovered/Not Resolved]
  - Off label use [Unknown]

NARRATIVE: CASE EVENT DATE: 19960101
